FAERS Safety Report 8875852 (Version 1)
Quarter: 2012Q4

REPORT INFORMATION
  Report Type: 
  Country: US (occurrence: US)
  Receive Date: 20121030
  Receipt Date: 20121030
  Transmission Date: 20130627
  Serious: Yes (Death, Life-Threatening, Other)
  Sender: FDA-Public Use
  Company Number: US-ROXANE LABORATORIES, INC.-2012-RO-02223RO

PATIENT
  Age: 14 Year
  Sex: Male

DRUGS (4)
  1. ZIDOVUDINE [Suspect]
     Indication: HIV INFECTION
     Route: 048
  2. STAVUDINE [Suspect]
     Indication: HIV INFECTION
     Route: 048
  3. LAMIVUDINE [Suspect]
     Indication: HIV INFECTION
     Route: 048
  4. FOSAMPRENAVIR [Suspect]
     Indication: HIV INFECTION
     Route: 048

REACTIONS (5)
  - Death [Fatal]
  - Disseminated intravascular coagulation [Unknown]
  - Blood lactic acid increased [Unknown]
  - Renal failure [Unknown]
  - Thrombocytopenia [Unknown]
